FAERS Safety Report 6168698-8 (Version None)
Quarter: 2009Q2

REPORT INFORMATION
  Report Type: 
  Country: None (occurrence: None)
  Receive Date: 20090427
  Receipt Date: 20090417
  Transmission Date: 20091009
  Serious: Yes (Other)
  Sender: FDA-Public Use
  Company Number: DE-PFIZER INC-2009199663

PATIENT

DRUGS (4)
  1. NORVASC [Suspect]
     Dosage: 5 MG, UNK
     Dates: start: 19970101
  2. ACETYLSALICYLIC ACID [Interacting]
     Dosage: UNK
     Dates: start: 20090301
  3. ISOSORBIDE DINITRATE [Interacting]
     Dosage: UNK
     Dates: start: 20090301
  4. MOLSIDOMINE [Interacting]
     Dosage: UNK
     Dates: start: 20090301

REACTIONS (2)
  - DRUG INTERACTION [None]
  - HYPERTENSION [None]
